FAERS Safety Report 6381088-8 (Version None)
Quarter: 2009Q3

REPORT INFORMATION
  Report Type: 
  Country: None (occurrence: None)
  Receive Date: 20090929
  Receipt Date: 20090921
  Transmission Date: 20100115
  Serious: Yes (Death)
  Sender: FDA-Public Use
  Company Number: US-JNJFOC-20090907404

PATIENT
  Age: 6 Week
  Sex: Male

DRUGS (4)
  1. CONCENTRATED MOTRIN INFANTS [Suspect]
  2. CONCENTRATED MOTRIN INFANTS [Suspect]
     Indication: PAIN
  3. TYLENOL (CAPLET) [Suspect]
  4. TYLENOL (CAPLET) [Suspect]
     Indication: PAIN

REACTIONS (1)
  - HAEMORRHAGE [None]
